FAERS Safety Report 4870260-1 (Version None)
Quarter: 2005Q4

REPORT INFORMATION
  Report Type: 
  Country: None (occurrence: None)
  Receive Date: 20051228
  Receipt Date: 20051219
  Transmission Date: 20060501
  Serious: Yes (Death, Life-Threatening, Other)
  Sender: FDA-Public Use
  Company Number: 2005JP002469

PATIENT
  Age: 80 Year
  Sex: Male
  Weight: 40 kg

DRUGS (10)
  1. FUNGUARD (MICAFUNGIN INJECTION) [Suspect]
     Indication: RESPIRATORY MONILIASIS
     Dosage: 100 MG, UID/QD, IV DRIP
     Route: 041
     Dates: start: 20051025, end: 20051122
  2. PAZUCROSS INJECTION [Concomitant]
  3. VANCOMYCIN (VANCOMYCIN) INJECTION [Concomitant]
  4. CIPROXAN (CIPROFLOXACIN HYDROCHLORIDE) INJECTION [Concomitant]
  5. LASIX (FUROSEMIDE) INJECTION [Concomitant]
  6. SOLDACTONE (POTASSIUM CANRENOATE) INJECTION [Concomitant]
  7. TARGOCID [Concomitant]
  8. GASTER INJECTION [Concomitant]
  9. MINOMYCIN (MINOCYCLINE HYDROCHLORIDE) INJECTION [Concomitant]
  10. SULPERAZON (CEFOPERAZONE SODIUM, SULBACTAM SODIUM) INJECTION [Concomitant]

REACTIONS (8)
  - BACTERIA SPUTUM IDENTIFIED [None]
  - ELECTROLYTE IMBALANCE [None]
  - MELAENA [None]
  - PLATELET COUNT DECREASED [None]
  - RENAL FAILURE [None]
  - RENAL IMPAIRMENT [None]
  - STAPHYLOCOCCAL INFECTION [None]
  - THERAPY NON-RESPONDER [None]
